FAERS Safety Report 5803079-5 (Version None)
Quarter: 2008Q2

REPORT INFORMATION
  Report Type: 
  Country: None (occurrence: None)
  Receive Date: 20080626
  Receipt Date: 20080508
  Transmission Date: 20081010
  Serious: Yes (Other)
  Sender: FDA-Public Use
  Company Number: A03200801780

PATIENT
  Age: 88 Year
  Sex: Male

DRUGS (3)
  1. AMBIEN CR [Suspect]
     Indication: INSOMNIA
     Dosage: 1 DF HS - ORAL
     Route: 048
     Dates: start: 20080506
  2. TAMSULOSIN HCL [Concomitant]
  3. ESOMEPRAZOLE [Concomitant]

REACTIONS (1)
  - HALLUCINATION [None]
